FAERS Safety Report 20233509 (Version 1)
Quarter: 2021Q4

REPORT INFORMATION
  Report Type: Report from Study
  Country: US (occurrence: US)
  Receive Date: 20211227
  Receipt Date: 20211227
  Transmission Date: 20220303
  Serious: Yes (Hospitalization, Other)
  Sender: FDA-Public Use
  Company Number: US-BAUSCH-BL-2021-042198

PATIENT
  Age: 64 Year
  Sex: Male

DRUGS (16)
  1. XIFAXAN [Suspect]
     Active Substance: RIFAXIMIN
     Indication: Product used for unknown indication
     Dosage: 1 TAB BY MOUTH TWICE A DAY
     Route: 048
     Dates: start: 20210702
  2. BREO ELLIPTA [Concomitant]
     Active Substance: FLUTICASONE FUROATE\VILANTEROL TRIFENATATE
     Indication: Product used for unknown indication
     Dosage: 200/25 MCG INHALE 1 PUFF EVERY DAY
     Dates: start: 20210702
  3. BUMETANIDE [Concomitant]
     Active Substance: BUMETANIDE
     Indication: Product used for unknown indication
     Dosage: 1 TAB BY MOUTH EVERY DAY
     Route: 048
     Dates: start: 20210628
  4. FOLIC ACID [Concomitant]
     Active Substance: FOLIC ACID
     Indication: Product used for unknown indication
     Dosage: 1 TAB BY MOUTH EVERY DAY
     Route: 048
     Dates: start: 20210702
  5. INCRUSE ELLIPTA [Concomitant]
     Active Substance: UMECLIDINIUM BROMIDE
     Indication: Product used for unknown indication
     Dosage: INHALE 1 PUFF EVERY DAY
     Dates: start: 20210702
  6. LACTULOSE [Concomitant]
     Active Substance: LACTULOSE
     Indication: Product used for unknown indication
     Dosage: 10 GRAM/15 ML TAKE 15ML BY MOUTH IN THE MORNING
     Route: 048
     Dates: start: 20210714
  7. METOPROLOL SUCCINATE [Concomitant]
     Active Substance: METOPROLOL SUCCINATE
     Indication: Product used for unknown indication
     Dosage: TAKE 1/2 TAB BY MOUTH EVERY DAY AT BED TIME
     Route: 048
     Dates: start: 20210727
  8. POTASSIUM CHLORIDE [Concomitant]
     Active Substance: POTASSIUM CHLORIDE
     Indication: Product used for unknown indication
     Dosage: TAKE 2 CAPSULE BY MOUTH TWICE DAY
     Route: 048
     Dates: start: 20210704
  9. ASPIRIN [Concomitant]
     Active Substance: ASPIRIN
     Indication: Product used for unknown indication
     Dosage: 1 TAB 1 TIME A DAY
     Route: 048
     Dates: start: 20210727
  10. MAGNESIUM OXIDE [Concomitant]
     Active Substance: MAGNESIUM OXIDE
     Indication: Product used for unknown indication
     Dosage: 1 TAB 2 TIMES A DAY
     Route: 048
     Dates: start: 20210727
  11. MIRALAX [Concomitant]
     Active Substance: POLYETHYLENE GLYCOL 3350
     Indication: Product used for unknown indication
     Dosage: 1 PACKET BY MOUTH 1 TIME A DAY AS NEEDED
     Route: 048
  12. SODIUM CHLORIDE [Concomitant]
     Active Substance: SODIUM CHLORIDE
     Indication: Product used for unknown indication
     Dosage: 1 TIME IN EACH NOSTRIL 1 TIME A DAY AS NEEDED
     Dates: start: 20211102
  13. TYLENOL [Concomitant]
     Active Substance: ACETAMINOPHEN
     Indication: Product used for unknown indication
     Dosage: AS NEEDED
     Route: 048
     Dates: start: 20210727
  14. VITAMIN D [Concomitant]
     Active Substance: VITAMIN D NOS
     Indication: Product used for unknown indication
     Dosage: 1 TAB BY MOUTH 1 TIME A DAY IN MORNING
     Route: 048
     Dates: start: 20211102
  15. VITAMIN D [Concomitant]
     Active Substance: VITAMIN D NOS
     Dosage: 1 TAB BY MOUTH 1 TIME A DAY IN MORNING
     Route: 048
     Dates: start: 20211102
  16. SPIRONOLACTONE [Concomitant]
     Active Substance: SPIRONOLACTONE
     Indication: Product used for unknown indication
     Route: 048
     Dates: start: 20210704

REACTIONS (7)
  - Cardiac failure congestive [Unknown]
  - Chronic respiratory failure [Unknown]
  - Pneumonia [Unknown]
  - Rectal haemorrhage [Recovered/Resolved]
  - Haematochezia [Recovered/Resolved]
  - Weight increased [Unknown]
  - Diarrhoea [Recovered/Resolved]

NARRATIVE: CASE EVENT DATE: 20210101
